FAERS Safety Report 15606974 (Version 1)
Quarter: 2018Q4

REPORT INFORMATION
  Report Type: Spontaneous
  Country: US (occurrence: US)
  Receive Date: 20181106
  Receipt Date: 20181106
  Transmission Date: 20190205
  Serious: No
  Sender: FDA-Public Use
  Company Number: None

PATIENT
  Sex: Female

DRUGS (1)
  1. CYCLOSPORINE MODIFIED 100MG MAYNE PHARMA [Suspect]
     Active Substance: CYCLOSPORINE
     Indication: APLASTIC ANAEMIA
     Route: 048
     Dates: start: 20181002

REACTIONS (2)
  - Gingival hypertrophy [None]
  - Hair growth abnormal [None]
